FAERS Safety Report 10565219 (Version 1)
Quarter: 2014Q4

REPORT INFORMATION
  Report Type: Spontaneous
  Country: None (occurrence: None)
  Receive Date: 20141103
  Receipt Date: 20141103
  Transmission Date: 20150529
  Serious: Yes (Other)
  Sender: FDA-Public Use
  Company Number: 2014100064

PATIENT
  Age: 12 Year
  Sex: Male
  Weight: 20 kg

DRUGS (8)
  1. VALIUM (DIAZEPAM (ORAL SUSPENSION)) [Concomitant]
  2. MOPRAL (OMEPRAZOLE) [Concomitant]
     Active Substance: OMEPRAZOLE SODIUM
  3. GARDENAL (PHENOBARBITAL) [Concomitant]
  4. KEPPRA [Concomitant]
     Active Substance: LEVETIRACETAM
  5. LAROXYL (AMITRIPTYLINE HYDROCHLORIDE) [Concomitant]
  6. URBANYL (CLOBAZAM) [Concomitant]
  7. MOTILIUM (DOMPERIDONE) [Concomitant]
  8. TALOXA [Suspect]
     Active Substance: FELBAMATE
     Indication: EPILEPSY
     Route: 048
     Dates: start: 20140715

REACTIONS (6)
  - Ear infection [None]
  - Pharyngitis [None]
  - Oropharyngeal pain [None]
  - Increased bronchial secretion [None]
  - Infection [None]
  - Sputum increased [None]

NARRATIVE: CASE EVENT DATE: 20140801
